FAERS Safety Report 4572407-3 (Version None)
Quarter: 2005Q1

REPORT INFORMATION
  Report Type: 
  Country: None (occurrence: None)
  Receive Date: 20050207
  Receipt Date: 20050126
  Transmission Date: 20050727
  Serious: Yes (Other)
  Sender: FDA-Public Use
  Company Number: 05-067

PATIENT
  Age: 18 Year
  Sex: Female

DRUGS (1)
  1. PAROXETINE HCL [Suspect]
     Indication: DRUG USE FOR UNKNOWN INDICATION
     Dosage: 10MG UNKNOWN
     Route: 048

REACTIONS (7)
  - CONVULSION [None]
  - DYSTONIA [None]
  - EYE ROLLING [None]
  - GRUNTING [None]
  - MUSCLE SPASMS [None]
  - MUSCLE TWITCHING [None]
  - TREMOR [None]
